FAERS Safety Report 4804113-1 (Version None)
Quarter: 2005Q4

REPORT INFORMATION
  Report Type: 
  Country: None (occurrence: None)
  Receive Date: 20051018
  Receipt Date: 20051018
  Transmission Date: 20060501
  Serious: No
  Sender: FDA-Public Use
  Company Number: None

PATIENT
  Age: 69 Year
  Sex: Female
  Weight: 55.3388 kg

DRUGS (2)
  1. PAXIL CR [Suspect]
     Indication: ANXIETY
     Dosage: 37.5 MG X 2 ONCE A DAY
  2. PAXIL CR [Suspect]
     Indication: DEPRESSION
     Dosage: 37.5 MG X 2 ONCE A DAY

REACTIONS (2)
  - ANXIETY [None]
  - BLOOD PRESSURE INCREASED [None]
